FAERS Safety Report 9896502 (Version 2)
Quarter: 2014Q1

REPORT INFORMATION
  Report Type: Spontaneous
  Country: US (occurrence: US)
  Receive Date: 20140213
  Receipt Date: 20140213
  Transmission Date: 20141002
  Serious: No
  Sender: FDA-Public Use
  Company Number: US-BRISTOL-MYERS SQUIBB COMPANY-18839498

PATIENT
  Age: 66 Year
  Sex: Female

DRUGS (1)
  1. ORENCIA FOR INJ 250 MG/VIAL [Suspect]
     Route: 042

REACTIONS (7)
  - Arthralgia [Unknown]
  - Oral pain [Unknown]
  - Rash [Unknown]
  - Malaise [Unknown]
  - Dry skin [Unknown]
  - Pain in extremity [Unknown]
  - Drug ineffective [Unknown]
